FAERS Safety Report 4719577-1 (Version None)
Quarter: 2005Q3

REPORT INFORMATION
  Report Type: 
  Country: None (occurrence: None)
  Receive Date: 20050721
  Receipt Date: 20031125
  Transmission Date: 20060218
  Serious: Yes (Other)
  Sender: FDA-Public Use
  Company Number: US-GLAXOSMITHKLINE-A0441691A

PATIENT
  Sex: Male
  Weight: 79.5 kg

DRUGS (5)
  1. AVANDIA [Suspect]
     Dosage: 4MG PER DAY
     Route: 048
     Dates: start: 20000627, end: 20010401
  2. XANAX [Concomitant]
  3. PAXIL [Concomitant]
  4. INSULIN [Concomitant]
     Dates: start: 19720101
  5. FLEXERIL [Concomitant]
     Route: 048

REACTIONS (1)
  - LIVER FUNCTION TEST ABNORMAL [None]
